FAERS Safety Report 9558913 (Version 2)
Quarter: 2013Q4

REPORT INFORMATION
  Report Type: Spontaneous
  Country: AT (occurrence: AT)
  Receive Date: 20130927
  Receipt Date: 20131014
  Transmission Date: 20140711
  Serious: Yes (Other)
  Sender: FDA-Public Use
  Company Number: AT-009507513-1309AUT009206

PATIENT
  Age: 61 Year
  Sex: Male

DRUGS (3)
  1. VICTRELIS [Suspect]
     Indication: HEPATITIS C
     Dosage: UNK
     Route: 048
     Dates: start: 20110722
  2. RIBAVIRIN [Suspect]
     Indication: HEPATITIS C
     Dosage: UNK
     Route: 048
     Dates: end: 20111130
  3. INTERFERON (UNSPECIFIED) [Suspect]
     Indication: HEPATITIS C
     Dosage: UNK
     Dates: end: 20111130

REACTIONS (4)
  - Staphylococcal sepsis [Unknown]
  - Anaemia [Unknown]
  - Neutropenia [Unknown]
  - No therapeutic response [Unknown]
